FAERS Safety Report 17107106 (Version 3)
Quarter: 2024Q1

REPORT INFORMATION
  Report Type: Report from Study
  Country: CO (occurrence: CO)
  Receive Date: 20191203
  Receipt Date: 20240125
  Transmission Date: 20240410
  Serious: Yes (Hospitalization, Other)
  Sender: FDA-Public Use
  Company Number: CO-ASTELLAS-2019US047861

PATIENT
  Age: 43 Year
  Sex: Male

DRUGS (8)
  1. TACROLIMUS [Suspect]
     Active Substance: TACROLIMUS
     Indication: Renal transplant
     Dosage: 20 MG, ONCE DAILY (4 CAPSULES OF 5MG)
     Route: 048
     Dates: start: 20171228, end: 20190930
  2. TACROLIMUS [Suspect]
     Active Substance: TACROLIMUS
     Dosage: 18 MG, ONCE DAILY (3 CAPSULES OF 5MG AND 3 CAPSULES OF 1MG)
     Route: 048
     Dates: start: 20191001
  3. TACROLIMUS [Suspect]
     Active Substance: TACROLIMUS
     Route: 048
  4. TACROLIMUS [Suspect]
     Active Substance: TACROLIMUS
     Route: 048
  5. TACROLIMUS [Suspect]
     Active Substance: TACROLIMUS
     Route: 048
     Dates: start: 2023
  6. MYCOPHENOLATE MOFETIL [Concomitant]
     Active Substance: MYCOPHENOLATE MOFETIL
     Indication: Renal transplant
     Route: 048
     Dates: start: 20171228
  7. DILTIAZEM [Concomitant]
     Active Substance: DILTIAZEM
     Indication: Blood pressure abnormal
     Route: 048
     Dates: start: 20171228
  8. PREDNISOLONE [Concomitant]
     Active Substance: PREDNISOLONE
     Indication: Renal transplant
     Route: 048
     Dates: start: 20171228

REACTIONS (5)
  - Secondary immunodeficiency [Not Recovered/Not Resolved]
  - Postoperative wound infection [Recovered/Resolved]
  - Lithiasis [Recovered/Resolved]
  - Immunosuppressant drug level abnormal [Not Recovered/Not Resolved]
  - Immunosuppressant drug level increased [Unknown]

NARRATIVE: CASE EVENT DATE: 20191001
